FAERS Safety Report 25925925 (Version 1)
Quarter: 2025Q4

REPORT INFORMATION
  Report Type: Spontaneous
  Country: US (occurrence: None)
  Receive Date: 20251014
  Receipt Date: 20251014
  Transmission Date: 20260117
  Serious: Yes (Other)
  Sender: FDA-CTU
  Company Number: None

PATIENT
  Age: 54 Year

DRUGS (1)
  1. ISOVUE 300 [Suspect]
     Active Substance: IOPAMIDOL
     Dosage: 400 ML  ONE TIME EVENT INTRAVENOUS?
     Route: 042

REACTIONS (2)
  - Urticaria [None]
  - Injection related reaction [None]

NARRATIVE: CASE EVENT DATE: 20250829
